FAERS Safety Report 11493014 (Version 4)
Quarter: 2015Q4

REPORT INFORMATION
  Report Type: Report from Study
  Country: US (occurrence: US)
  Receive Date: 20150911
  Receipt Date: 20151127
  Transmission Date: 20160304
  Serious: Yes (Other)
  Sender: FDA-Public Use
  Company Number: PHEH2015US017682

PATIENT
  Age: 41 Year
  Sex: Female
  Weight: 84.36 kg

DRUGS (6)
  1. OLUX [Concomitant]
     Active Substance: CLOBETASOL PROPIONATE
     Indication: PSORIASIS
     Dosage: APPLY BID PRN
     Route: 061
     Dates: start: 20120130, end: 20150821
  2. DERMA SMOOTHE [Concomitant]
     Indication: PSORIASIS
     Dosage: APPLY QLTS PRN
     Route: 061
     Dates: start: 20120130, end: 20150821
  3. KENALOG [Concomitant]
     Active Substance: TRIAMCINOLONE ACETONIDE
     Indication: PSORIASIS
     Dosage: 5 MG/ML, UNK
     Route: 026
     Dates: start: 201304, end: 20150821
  4. CORMAX [Concomitant]
     Active Substance: CLOBETASOL PROPIONATE
     Indication: PSORIASIS
     Dosage: APPLY BID PRN
     Route: 061
     Dates: start: 20120130, end: 20150821
  5. COSENTYX [Suspect]
     Active Substance: SECUKINUMAB
     Indication: PSORIASIS
     Dosage: 300 MG, QW FOR 5 WEEKS
     Route: 058
     Dates: start: 20150813
  6. CLOBETASOL [Concomitant]
     Active Substance: CLOBETASOL
     Indication: PSORIASIS
     Dosage: APPLY BID PRN
     Route: 061
     Dates: start: 20120130, end: 20150821

REACTIONS (3)
  - Infectious mononucleosis [Unknown]
  - Bronchiolitis [Unknown]
  - Cough [Not Recovered/Not Resolved]

NARRATIVE: CASE EVENT DATE: 201508
